FAERS Safety Report 16996597 (Version 4)
Quarter: 2020Q4

REPORT INFORMATION
  Report Type: Spontaneous
  Country: US (occurrence: US)
  Receive Date: 20191105
  Receipt Date: 20201006
  Transmission Date: 20210113
  Serious: No
  Sender: FDA-Public Use
  Company Number: US-SA-2019SA303489

PATIENT

DRUGS (3)
  1. DUPIXENT [Suspect]
     Active Substance: DUPILUMAB
     Indication: NASAL POLYPS
  2. DUPIXENT [Suspect]
     Active Substance: DUPILUMAB
     Indication: ASTHMA
  3. DUPIXENT [Suspect]
     Active Substance: DUPILUMAB
     Indication: CHRONIC SINUSITIS
     Dosage: 300 MG, QOW
     Route: 058
     Dates: start: 20191022

REACTIONS (6)
  - Disorientation [Unknown]
  - Somnolence [Unknown]
  - Insomnia [Unknown]
  - Dizziness postural [Unknown]
  - Dyspnoea [Unknown]
  - Injection site pain [Unknown]

NARRATIVE: CASE EVENT DATE: 2019
